FAERS Safety Report 13596137 (Version 1)
Quarter: 2017Q2

REPORT INFORMATION
  Report Type: Spontaneous
  Country: US (occurrence: US)
  Receive Date: 20170531
  Receipt Date: 20170531
  Transmission Date: 20170830
  Serious: No
  Sender: FDA-Public Use
  Company Number: US-JNJFOC-20170317978

PATIENT
  Age: 63 Year
  Sex: Male
  Weight: 72.58 kg

DRUGS (3)
  1. LATUDA [Concomitant]
     Active Substance: LURASIDONE HYDROCHLORIDE
     Indication: BIPOLAR DISORDER
     Route: 065
  2. TYLENOL EXTRA STRENGTH [Suspect]
     Active Substance: ACETAMINOPHEN
     Indication: ARTHRALGIA
     Dosage: 1 CAPLET AND 2 IF NEEDED
     Route: 048
     Dates: start: 20161201
  3. OXYCODONE [Concomitant]
     Active Substance: OXYCODONE
     Indication: PAIN
     Route: 065

REACTIONS (4)
  - Nausea [Recovering/Resolving]
  - Irritability [Recovering/Resolving]
  - Incorrect dose administered [Recovering/Resolving]
  - Hangover [Recovering/Resolving]
